FAERS Safety Report 6016960-1 (Version None)
Quarter: 2008Q4

REPORT INFORMATION
  Report Type: 
  Country: None (occurrence: None)
  Receive Date: 20081219
  Receipt Date: 20081203
  Transmission Date: 20090506
  Serious: Yes (Other)
  Sender: FDA-Public Use
  Company Number: 8040020

PATIENT
  Age: 11 Month
  Sex: Male
  Weight: 10.5 kg

DRUGS (1)
  1. KEPPRA [Suspect]
     Indication: EPILEPSY
     Dosage: 700 MG 2/D PO
     Route: 048
     Dates: start: 20071001

REACTIONS (3)
  - DEVELOPMENTAL DELAY [None]
  - FAILURE TO THRIVE [None]
  - GAIT DISTURBANCE [None]
